FAERS Safety Report 12780328 (Version 2)
Quarter: 2016Q4

REPORT INFORMATION
  Report Type: Spontaneous
  Country: US (occurrence: US)
  Receive Date: 20160926
  Receipt Date: 20161004
  Transmission Date: 20170207
  Serious: Yes (Other)
  Sender: FDA-Public Use
  Company Number: US-PFIZER INC-2016443191

PATIENT
  Age: 42 Year
  Sex: Female
  Weight: 139.7 kg

DRUGS (7)
  1. TYLENOL [Concomitant]
     Active Substance: ACETAMINOPHEN
     Dosage: TWO 325MG AT NIGHT
     Dates: start: 201605
  2. CYCLOBENZAPRINE [Concomitant]
     Active Substance: CYCLOBENZAPRINE
     Indication: MUSCLE SPASMS
     Dosage: 20 MG, 2X/DAY (10MG TWO IN MORNING AND TWO AT NIGHT)
     Dates: end: 201604
  3. LYRICA [Suspect]
     Active Substance: PREGABALIN
     Indication: ARTHRALGIA
     Dosage: 75 MG, 2X/DAY (ONE IN MORNING AND ONE AT NIGHT)
     Dates: start: 201606
  4. CEFAZOLIN [Concomitant]
     Active Substance: CEFAZOLIN
     Dosage: 500 MG, 3X/DAY
  5. FETZIMA [Concomitant]
     Active Substance: LEVOMILNACIPRAN HYDROCHLORIDE
     Indication: ANTIDEPRESSANT THERAPY
     Dosage: 40 MG, UNK
     Dates: start: 2015
  6. LYRICA [Suspect]
     Active Substance: PREGABALIN
     Indication: PAIN
     Dosage: 150 MG, 3X/DAY
     Dates: end: 201604
  7. LYRICA [Suspect]
     Active Substance: PREGABALIN
     Dosage: 150 MG, 3X/DAY
     Route: 048
     Dates: start: 20160922

REACTIONS (16)
  - Pain [Not Recovered/Not Resolved]
  - Muscle spasms [Not Recovered/Not Resolved]
  - Withdrawal syndrome [Unknown]
  - Weight decreased [Unknown]
  - Vision blurred [Not Recovered/Not Resolved]
  - Contusion [Not Recovered/Not Resolved]
  - Laceration [Not Recovered/Not Resolved]
  - Depression [Not Recovered/Not Resolved]
  - Localised infection [Not Recovered/Not Resolved]
  - Fall [Unknown]
  - Dysstasia [Not Recovered/Not Resolved]
  - Arthralgia [Unknown]
  - Decreased appetite [Unknown]
  - Asthenia [Unknown]
  - Sensation of blood flow [Not Recovered/Not Resolved]
  - Mobility decreased [Not Recovered/Not Resolved]

NARRATIVE: CASE EVENT DATE: 2014
